FAERS Safety Report 18291386 (Version 1)
Quarter: 2020Q3

REPORT INFORMATION
  Report Type: Spontaneous
  Country: US (occurrence: US)
  Receive Date: 20200922
  Receipt Date: 20200922
  Transmission Date: 20201103
  Serious: Yes (Disabling)
  Sender: FDA-Public Use
  Company Number: US-SA-2020SA257151

PATIENT

DRUGS (2)
  1. DUPIXENT [Suspect]
     Active Substance: DUPILUMAB
     Indication: ASTHMA
     Dosage: 300 MG, QOW
     Route: 058
     Dates: start: 20200819
  2. XOLAIR [Suspect]
     Active Substance: OMALIZUMAB

REACTIONS (12)
  - Rash [Unknown]
  - Chest discomfort [Unknown]
  - Injection site pain [Unknown]
  - Wheezing [Unknown]
  - Eczema [Unknown]
  - Dry skin [Unknown]
  - Asthma [Unknown]
  - Product use issue [Unknown]
  - Loss of personal independence in daily activities [Unknown]
  - Dyspnoea [Unknown]
  - Cough [Unknown]
  - Injection site pain [Unknown]

NARRATIVE: CASE EVENT DATE: 2020
